FAERS Safety Report 5117894-7 (Version None)
Quarter: 2006Q3

REPORT INFORMATION
  Report Type: 
  Country: None (occurrence: None)
  Receive Date: 20060929
  Receipt Date: 20060918
  Transmission Date: 20061208
  Serious: Yes (Other)
  Sender: FDA-Public Use
  Company Number: PHEH2006US11909

PATIENT
  Age: 53 Year
  Sex: Male

DRUGS (5)
  1. DICYCLOMINE [Concomitant]
  2. PROTONIX [Concomitant]
  3. HYDROCORTISONE [Concomitant]
  4. PRILOSEC [Concomitant]
  5. LOTREL [Suspect]
     Indication: HYPERTENSION
     Dosage: 10/20, QD
     Dates: start: 20050901

REACTIONS (2)
  - ABDOMINAL PAIN UPPER [None]
  - PANCREATIC DISORDER [None]
